FAERS Safety Report 5030445-0 (Version None)
Quarter: 2006Q2

REPORT INFORMATION
  Report Type: 
  Country: None (occurrence: None)
  Receive Date: 20060614
  Receipt Date: 20060601
  Transmission Date: 20061013
  Serious: Yes (Hospitalization, Other)
  Sender: FDA-Public Use
  Company Number: HQWYE966406JUN06

PATIENT
  Sex: Female

DRUGS (1)
  1. EFFEXOR XR [Suspect]
     Indication: MAJOR DEPRESSION
     Dosage: 75 MG 1X PER 1 DAY ORAL
     Route: 048
     Dates: end: 20050701

REACTIONS (10)
  - ABDOMINAL DISTENSION [None]
  - CAESAREAN SECTION [None]
  - DEPRESSION [None]
  - DISEASE RECURRENCE [None]
  - DRUG EXPOSURE DURING PREGNANCY [None]
  - IRRITABILITY [None]
  - NAUSEA [None]
  - OLIGOHYDRAMNIOS [None]
  - ORAL INTAKE REDUCED [None]
  - PREMATURE LABOUR [None]
